FAERS Safety Report 4521021-4 (Version None)
Quarter: 2004Q4

REPORT INFORMATION
  Report Type: 
  Country: None (occurrence: None)
  Receive Date: 20041208
  Receipt Date: 20041130
  Transmission Date: 20050328
  Serious: Yes (Hospitalization)
  Sender: FDA-Public Use
  Company Number: 200414501FR

PATIENT
  Age: 18 Year
  Sex: Female

DRUGS (3)
  1. BIRODOGYL [Suspect]
     Indication: DENTAL CARE
     Route: 048
     Dates: start: 20040924, end: 20040926
  2. NORDETTE-21 [Suspect]
     Indication: CONTRACEPTION
     Route: 048
     Dates: start: 20040701, end: 20041115
  3. DIALGIREX [Concomitant]
     Route: 048
     Dates: start: 20040924, end: 20040924

REACTIONS (6)
  - ABDOMINAL PAIN UPPER [None]
  - BILIRUBIN CONJUGATED INCREASED [None]
  - BLOOD ALKALINE PHOSPHATASE INCREASED [None]
  - BLOOD BILIRUBIN INCREASED [None]
  - JAUNDICE [None]
  - PRURITUS [None]
